FAERS Safety Report 8797293 (Version 1)
Quarter: 2012Q4

REPORT INFORMATION
  Report Type: Report from Study
  Country: CA (occurrence: CA)
  Receive Date: 20120919
  Receipt Date: 20120919
  Transmission Date: 20130627
  Serious: Yes (Death)
  Sender: FDA-Public Use
  Company Number: CA-ROCHE-1125468

PATIENT
  Sex: Female
  Weight: 84.9 kg

DRUGS (6)
  1. AVASTIN [Suspect]
     Indication: OLIGODENDROGLIOMA
     Route: 042
     Dates: start: 20120906, end: 20120906
  2. AVASTIN [Suspect]
     Indication: GLIOBLASTOMA
  3. DIVALPROEX [Concomitant]
  4. CLOBAZAM [Concomitant]
  5. DEXAMETHASONE [Concomitant]
  6. PANTOLOC [Concomitant]

REACTIONS (2)
  - Pneumonia [Fatal]
  - Sepsis [Fatal]
